FAERS Safety Report 18305586 (Version 2)
Quarter: 2020Q3

REPORT INFORMATION
  Report Type: Spontaneous
  Country: US (occurrence: US)
  Receive Date: 20200923
  Receipt Date: 20200929
  Transmission Date: 20201103
  Serious: No
  Sender: FDA-Public Use
  Company Number: US-TEVA-2020-US-1831170

PATIENT
  Age: 78 Year
  Sex: Female
  Weight: 71.21 kg

DRUGS (2)
  1. PREGABALIN TEVA [Suspect]
     Active Substance: PREGABALIN
     Dosage: 75MG; TAKE ONE IN THE AM AND TWO IN THE PM
     Route: 065
  2. PREGABALIN TEVA [Suspect]
     Active Substance: PREGABALIN
     Indication: PAIN
     Dosage: USED FOUR MONTHS AGO/PHARMACY VIAL
     Route: 065

REACTIONS (8)
  - Weight increased [Unknown]
  - Hyperphagia [Unknown]
  - Swelling of eyelid [Recovered/Resolved]
  - Periorbital swelling [Recovered/Resolved]
  - Peripheral swelling [Unknown]
  - Drug ineffective [Unknown]
  - Joint swelling [Unknown]
  - Hunger [Unknown]

NARRATIVE: CASE EVENT DATE: 2020
